FAERS Safety Report 20927783 (Version 1)
Quarter: 2022Q2

REPORT INFORMATION
  Report Type: Spontaneous
  Country: US (occurrence: US)
  Receive Date: 20220607
  Receipt Date: 20220607
  Transmission Date: 20220720
  Serious: No
  Sender: FDA-Public Use
  Company Number: US-PERRIGO-21US031996

PATIENT
  Age: 69 Year
  Sex: Female
  Weight: 58.957 kg

DRUGS (2)
  1. MINOXIDIL [Suspect]
     Active Substance: MINOXIDIL
     Indication: Alopecia
     Dosage: 0.5 CAPFUL, QD
     Route: 061
     Dates: start: 20211025, end: 202111
  2. MINOXIDIL [Suspect]
     Active Substance: MINOXIDIL
     Dosage: 1.5 CAPFUL, QD
     Route: 061
     Dates: start: 202111, end: 20211207

REACTIONS (4)
  - Product administered at inappropriate site [Recovered/Resolved]
  - Wrong technique in product usage process [Recovered/Resolved]
  - Overdose [Recovered/Resolved]
  - Off label use [Recovered/Resolved]

NARRATIVE: CASE EVENT DATE: 20211001
